FAERS Safety Report 21787752 (Version 1)
Quarter: 2022Q4

REPORT INFORMATION
  Report Type: Spontaneous
  Country: US (occurrence: US)
  Receive Date: 20221228
  Receipt Date: 20221228
  Transmission Date: 20230113
  Serious: Yes (Other)
  Sender: FDA-Public Use
  Company Number: US-Fresenius Medical Care Renal Therapies Group-FMC-2212-001944

PATIENT
  Age: 69 Year
  Sex: Male

DRUGS (1)
  1. DELFLEX WITH DEXTROSE 1.5% LOW MAGNESIUM LOW CALCIUM [Suspect]
     Active Substance: CALCIUM CHLORIDE\DEXTROSE\MAGNESIUM CHLORIDE\SODIUM CHLORIDE\SODIUM LACTATE
     Indication: End stage renal disease
     Dosage: TTV 12200 ML, 5 FILLS, FV 2800 ML, LFV 1000 ML, TST 8 HOURS 30 MINUTES
     Route: 033

REACTIONS (1)
  - Peritonitis bacterial [Recovering/Resolving]
